FAERS Safety Report 4971359-1 (Version None)
Quarter: 2006Q2

REPORT INFORMATION
  Report Type: 
  Country: None (occurrence: None)
  Receive Date: 20060413
  Receipt Date: 20060405
  Transmission Date: 20061013
  Serious: Yes (Hospitalization)
  Sender: FDA-Public Use
  Company Number: US-KINGPHARMUSA00001-K200600422

PATIENT
  Age: 73 Year
  Sex: Male

DRUGS (9)
  1. ALTACE [Suspect]
     Dosage: 10 MG, QD
     Dates: end: 20051114
  2. IRBESARTAN [Suspect]
     Indication: CARDIOVASCULAR EVENT PROPHYLAXIS
     Dosage: 150 MG, QD
     Route: 048
     Dates: start: 20040604, end: 20040601
  3. IRBESARTAN [Suspect]
     Dosage: 300 MG, QD
     Route: 048
     Dates: start: 20040601, end: 20051114
  4. IRBESARTAN [Suspect]
     Dosage: PER ACTIVE I PROTOCOL
     Route: 048
     Dates: start: 20051118
  5. WARFARIN SODIUM [Concomitant]
     Indication: CARDIOVASCULAR EVENT PROPHYLAXIS
     Route: 048
     Dates: start: 20040603, end: 20051017
  6. WARFARIN SODIUM [Concomitant]
     Route: 048
     Dates: start: 20051018
  7. BISOPROLOL [Concomitant]
     Dosage: 5 MG, UNK
  8. FUROSEMIDE [Concomitant]
     Dosage: 30 MG, UNK
  9. DIGOXIN [Concomitant]
     Dosage: .25 MG, UNK
     Dates: end: 20051114

REACTIONS (8)
  - BRADYCARDIA [None]
  - CHEST DISCOMFORT [None]
  - DIZZINESS [None]
  - FATIGUE [None]
  - HYPERKALAEMIA [None]
  - NAUSEA [None]
  - RENAL FAILURE [None]
  - THERAPEUTIC AGENT TOXICITY [None]
